FAERS Safety Report 12836188 (Version 1)
Quarter: 2016Q4

REPORT INFORMATION
  Report Type: Spontaneous
  Country: US (occurrence: US)
  Receive Date: 20161010
  Receipt Date: 20161010
  Transmission Date: 20170207
  Serious: No
  Sender: FDA-Public Use
  Company Number: None

PATIENT
  Age: 74 Year
  Sex: Female

DRUGS (5)
  1. IBRANCE [Suspect]
     Active Substance: PALBOCICLIB
     Indication: BREAST CANCER
     Dosage: IBRANCE 1 CAP - PO - QD X 21 DAYS
     Route: 048
     Dates: start: 20160127
  2. FOLIC ACID. [Concomitant]
     Active Substance: FOLIC ACID
  3. PROBIOTIC [Concomitant]
     Active Substance: PROBIOTICS NOS
  4. VITAMIN B12 [Concomitant]
     Active Substance: CYANOCOBALAMIN
  5. LETROZOLE. [Concomitant]
     Active Substance: LETROZOLE

REACTIONS (2)
  - Tumour excision [None]
  - Therapy cessation [None]

NARRATIVE: CASE EVENT DATE: 201609
